FAERS Safety Report 19563516 (Version 2)
Quarter: 2021Q3

REPORT INFORMATION
  Report Type: Spontaneous
  Country: IL (occurrence: IL)
  Receive Date: 20210716
  Receipt Date: 20210719
  Transmission Date: 20211014
  Serious: Yes (Other)
  Sender: FDA-Public Use
  Company Number: IL-TEVA-2021-IL-1932248

PATIENT
  Age: 83 Year
  Sex: Female

DRUGS (7)
  1. CARBOPLATIN. [Suspect]
     Active Substance: CARBOPLATIN
     Dosage: WEEKLY
     Route: 065
     Dates: start: 201812, end: 201904
  2. CAELYX [Suspect]
     Active Substance: DOXORUBICIN HYDROCHLORIDE
     Route: 065
     Dates: start: 201905, end: 202001
  3. ELIQUIS [Concomitant]
     Active Substance: APIXABAN
     Route: 065
  4. CARBOPLATIN. [Suspect]
     Active Substance: CARBOPLATIN
     Indication: FALLOPIAN TUBE CANCER
     Route: 065
     Dates: start: 201509, end: 201512
  5. CARDILOC [Concomitant]
     Active Substance: BISOPROLOL FUMARATE
     Route: 065
  6. PACLITAXEL. [Suspect]
     Active Substance: PACLITAXEL
     Indication: FALLOPIAN TUBE CANCER
     Route: 065
     Dates: start: 201509, end: 201512
  7. EUTHYROX [Concomitant]
     Active Substance: LEVOTHYROXINE SODIUM

REACTIONS (14)
  - Peritoneal lesion [Unknown]
  - Drug resistance [Unknown]
  - Disease progression [Unknown]
  - Pancytopenia [Unknown]
  - DNA mismatch repair deficiency test [Unknown]
  - Back pain [Unknown]
  - Abdominal lymphadenopathy [Unknown]
  - Alopecia [Unknown]
  - Asthenia [Unknown]
  - Metastases to peritoneum [Unknown]
  - Loss of personal independence in daily activities [Unknown]
  - Abdominal pain [Unknown]
  - Dizziness [Unknown]
  - Peripheral sensory neuropathy [Unknown]

NARRATIVE: CASE EVENT DATE: 2015
